FAERS Safety Report 17051027 (Version 8)
Quarter: 2025Q3

REPORT INFORMATION
  Report Type: Report from Study
  Country: EU (occurrence: EU)
  Receive Date: 20191120
  Receipt Date: 20250718
  Transmission Date: 20251021
  Serious: Yes (Death, Other)
  Sender: ROCHE
  Company Number: EU-NOVPHSZ-PHHY2019ES027615

PATIENT
  Age: 16 Year
  Sex: Female

DRUGS (13)
  1. MYCOPHENOLATE MOFETIL [Suspect]
     Active Substance: MYCOPHENOLATE MOFETIL
     Indication: Stem cell transplant
     Route: 065
  2. MYCOPHENOLATE MOFETIL [Suspect]
     Active Substance: MYCOPHENOLATE MOFETIL
     Indication: Immunosuppressant drug therapy
  3. MYCOPHENOLATE MOFETIL [Suspect]
     Active Substance: MYCOPHENOLATE MOFETIL
     Indication: Prophylaxis against graft versus host disease
  4. PREDNISONE [Suspect]
     Active Substance: PREDNISONE
     Indication: Stem cell transplant
     Dosage: 2 MG/KG, QD
     Route: 065
  5. PREDNISONE [Suspect]
     Active Substance: PREDNISONE
     Indication: Immunosuppressant drug therapy
  6. THIOTEPA [Suspect]
     Active Substance: THIOTEPA
     Indication: Stem cell transplant
     Route: 065
  7. THIOTEPA [Suspect]
     Active Substance: THIOTEPA
     Indication: Immunosuppressant drug therapy
  8. FLUDARABINE [Suspect]
     Active Substance: FLUDARABINE PHOSPHATE
     Indication: Stem cell transplant
     Route: 065
  9. FLUDARABINE [Suspect]
     Active Substance: FLUDARABINE PHOSPHATE
     Indication: Immunosuppressant drug therapy
  10. SULFAMETHOXAZOLE\TRIMETHOPRIM [Concomitant]
     Active Substance: SULFAMETHOXAZOLE\TRIMETHOPRIM
     Indication: Prophylaxis
     Route: 065
  11. GRANULOCYTE COLONY-STIMULATING FACTOR NOS [Concomitant]
     Active Substance: GRANULOCYTE COLONY-STIMULATING FACTOR NOS
  12. MICAFUNGIN [Concomitant]
     Active Substance: MICAFUNGIN SODIUM
     Indication: Prophylaxis
     Route: 065
  13. ACYCLOVIR [Concomitant]
     Active Substance: ACYCLOVIR
     Indication: Prophylaxis
     Route: 065

REACTIONS (6)
  - Human herpesvirus 6 infection [Recovered/Resolved]
  - Bacterial sepsis [Fatal]
  - Pre-engraftment immune reaction [Unknown]
  - Off label use [Unknown]
  - Encephalitis viral [Recovered/Resolved]
  - Encephalitis herpes [Unknown]
